FAERS Safety Report 10636836 (Version 3)
Quarter: 2015Q1

REPORT INFORMATION
  Report Type: Spontaneous
  Country: US (occurrence: US)
  Receive Date: 20141208
  Receipt Date: 20150213
  Transmission Date: 20150720
  Serious: Yes (Death, Other)
  Sender: FDA-Public Use
  Company Number: US-009507513-1412USA002071

PATIENT
  Sex: Male

DRUGS (2)
  1. EMEND [Suspect]
     Active Substance: APREPITANT
     Indication: PRODUCT USED FOR UNKNOWN INDICATION
     Dosage: 125MG ON DAY 1
     Route: 048
  2. EMEND [Suspect]
     Active Substance: APREPITANT
     Dosage: 80MG ON DAYS 2 AND 3
     Route: 048

REACTIONS (2)
  - Small cell lung cancer [Unknown]
  - Death [Fatal]
